FAERS Safety Report 16212469 (Version 1)
Quarter: 2019Q2

REPORT INFORMATION
  Report Type: Spontaneous
  Country: US (occurrence: US)
  Receive Date: 20190418
  Receipt Date: 20190418
  Transmission Date: 20190711
  Serious: No
  Sender: FDA-Public Use
  Company Number: US-PFIZER INC-2016066789

PATIENT
  Age: 71 Year
  Sex: Female

DRUGS (21)
  1. CYMBALTA [Concomitant]
     Active Substance: DULOXETINE HYDROCHLORIDE
     Dosage: 60 MG, 1X/DAY (IN AM)
  2. CALCIUM 600 + D [Concomitant]
     Active Substance: CALCIUM\VITAMIN D
     Dosage: 1 DF, 3X/DAY
  3. FISH OIL [Concomitant]
     Active Substance: FISH OIL
     Dosage: 1290 MG, 1X/DAY (AT BEDTIME)
  4. GAS-X [Concomitant]
     Active Substance: DIMETHICONE
     Dosage: 125 MG, AS NEEDED [1 A DAY PRN]
  5. PREVACID [Concomitant]
     Active Substance: LANSOPRAZOLE
     Dosage: 30 MG, 1X/DAY
  6. UNISOM SLEEPGELS NIGHTTIME SLEEP-AID [Concomitant]
     Active Substance: DIPHENHYDRAMINE HYDROCHLORIDE
     Dosage: UNK, AS NEEDED
  7. VALSARTAN AND HYDROCHLOROTHIAZIDE [Concomitant]
     Active Substance: HYDROCHLOROTHIAZIDE\VALSARTAN
     Indication: BLOOD PRESSURE ABNORMAL
     Dosage: UNK, 1X/DAY [HYDROCHLOROTHIAZIDE: 25MG/VALSARTAN: 160MG]
  8. EVOXAC [Concomitant]
     Active Substance: CEVIMELINE HYDROCHLORIDE
     Dosage: 30 MG, 3X/DAY
  9. DESONIDE. [Concomitant]
     Active Substance: DESONIDE
     Dosage: UNK, 2X/DAY (AFTER CLEANING FACE)
  10. LYRICA [Suspect]
     Active Substance: PREGABALIN
     Dosage: 50 MG, 3X/DAY
     Route: 048
  11. LISINOPRIL. [Concomitant]
     Active Substance: LISINOPRIL
     Indication: BLOOD PRESSURE ABNORMAL
     Dosage: 20 MG, 1X/DAY (AT BEDTIME)
  12. BACLOFEN. [Concomitant]
     Active Substance: BACLOFEN
     Dosage: 10 MG, 2X/DAY
  13. WELLBUTRIN [Concomitant]
     Active Substance: BUPROPION HYDROCHLORIDE
     Dosage: 300 MG, 1X/DAY (IN AM)
  14. CLONAZEPAM. [Concomitant]
     Active Substance: CLONAZEPAM
     Dosage: 0.5 MG, 1X/DAY (IN PM)
  15. CLONIDINE. [Concomitant]
     Active Substance: CLONIDINE
     Indication: BLOOD PRESSURE ABNORMAL
     Dosage: 0.2 MG, 2X/DAY
  16. METAMUCIL [Concomitant]
     Active Substance: PLANTAGO SEED
     Dosage: UNK, 1X/DAY (1 TBL SPOON, ONCE A DAY)
  17. METROGEL [Concomitant]
     Active Substance: METRONIDAZOLE
     Dosage: UNK, 2X/DAY (AFTER CLEANING FACE)
  18. METOPROLOL TARTRATE. [Concomitant]
     Active Substance: METOPROLOL TARTRATE
     Indication: BLOOD PRESSURE ABNORMAL
     Dosage: 100 MG, 2X/DAY
  19. LISINOPRIL HCTZ [Concomitant]
     Active Substance: HYDROCHLOROTHIAZIDE\LISINOPRIL
     Indication: BLOOD PRESSURE ABNORMAL
     Dosage: UNK, 1X/DAY [(LISINOPRIL 20/HYDROCLOTHAZIDE 25) MG 1 A DAY (AM)]
  20. GABAPEN [Concomitant]
     Active Substance: GABAPENTIN
     Dosage: 300 MG, 2X/DAY
  21. BAYER LOW DOSE [Concomitant]
     Active Substance: ASPIRIN
     Dosage: 81 MG, 1X/DAY (IN AM)

REACTIONS (3)
  - Dizziness [Unknown]
  - Nausea [Unknown]
  - Bronchitis [Unknown]
